FAERS Safety Report 5990158-5 (Version None)
Quarter: 2008Q4

REPORT INFORMATION
  Report Type: 
  Country: None (occurrence: None)
  Receive Date: 20081211
  Receipt Date: 20081204
  Transmission Date: 20090506
  Serious: Yes (Hospitalization)
  Sender: FDA-Public Use
  Company Number: PHHO2008US11265

PATIENT
  Sex: Female
  Weight: 52 kg

DRUGS (6)
  1. ZOMETA [Suspect]
     Dosage: UNK
     Dates: start: 20080425, end: 20080709
  2. ZOMETA [Suspect]
     Dosage: UNK
     Dates: start: 20080724
  3. SUNITINIB MALATE [Concomitant]
     Indication: BREAST CANCER
     Dosage: UNK MG, UNK
     Route: 048
     Dates: start: 20080719
  4. DOCETAXEL [Concomitant]
     Indication: BREAST CANCER
     Dosage: 90 MG, TIW
     Dates: start: 20080718
  5. MAGNESIUM SULFATE [Concomitant]
     Dosage: UNK
     Dates: start: 20080708
  6. IBUPROFEN TABLETS [Concomitant]
     Dosage: UNK
     Dates: start: 20080708

REACTIONS (4)
  - INFLAMMATION [None]
  - PERIODONTITIS [None]
  - TOOTH DISORDER [None]
  - TOOTH EXTRACTION [None]
